FAERS Safety Report 9994264 (Version 1)
Quarter: 2014Q1

REPORT INFORMATION
  Report Type: Spontaneous
  Country: US (occurrence: US)
  Receive Date: 20140310
  Receipt Date: 20140310
  Transmission Date: 20141002
  Serious: Yes (Hospitalization)
  Sender: FDA-Public Use
  Company Number: US-BAXTER-2014BAX011012

PATIENT
  Sex: Male

DRUGS (2)
  1. DIANEAL LOW CALCIUM [Suspect]
     Indication: PERITONEAL DIALYSIS
     Route: 033
     Dates: start: 20130626
  2. COUMADIN [Concomitant]
     Indication: HEART DISEASE CONGENITAL
     Route: 065

REACTIONS (2)
  - Localised infection [Unknown]
  - No therapeutic response [Unknown]
